FAERS Safety Report 7964754-X (Version None)
Quarter: 2011Q4

REPORT INFORMATION
  Report Type: 
  Country: None (occurrence: None)
  Receive Date: 20111208
  Receipt Date: 20111205
  Transmission Date: 20120403
  Serious: Yes (Hospitalization, Other)
  Sender: FDA-Public Use
  Company Number: US-PFIZER INC-2011147885

PATIENT
  Sex: Female

DRUGS (1)
  1. CHANTIX [Suspect]
     Indication: SMOKING CESSATION THERAPY
     Dosage: 1 MG, UNK
     Dates: start: 20081104, end: 20101003

REACTIONS (13)
  - EMOTIONAL DISTRESS [None]
  - MENTAL DISORDER [None]
  - INTENTIONAL OVERDOSE [None]
  - BIPOLAR DISORDER [None]
  - AGGRESSION [None]
  - DISORIENTATION [None]
  - SUICIDE ATTEMPT [None]
  - SUICIDAL IDEATION [None]
  - ABNORMAL BEHAVIOUR [None]
  - IMPAIRED DRIVING ABILITY [None]
  - DEPRESSION [None]
  - ANXIETY [None]
  - ABDOMINAL PAIN UPPER [None]
